FAERS Safety Report 21685212 (Version 1)
Quarter: 2022Q4

REPORT INFORMATION
  Report Type: Spontaneous
  Country: TR (occurrence: TR)
  Receive Date: 20221206
  Receipt Date: 20221206
  Transmission Date: 20230113
  Serious: Yes (Hospitalization, Other)
  Sender: FDA-Public Use
  Company Number: TR-WOCKHARDT BIO AG-2022WBA000193

PATIENT
  Age: 29 Year
  Sex: Male

DRUGS (2)
  1. AMOXICILLIN\CLAVULANATE POTASSIUM [Suspect]
     Active Substance: AMOXICILLIN\CLAVULANATE POTASSIUM
     Indication: Upper respiratory tract infection
     Dosage: 1 GRAM
     Route: 048
  2. AMPICILLIN SODIUM\SULBACTAM SODIUM [Suspect]
     Active Substance: AMPICILLIN SODIUM\SULBACTAM SODIUM
     Indication: Upper respiratory tract infection
     Dosage: 1 GRAM
     Route: 030

REACTIONS (2)
  - Kounis syndrome [Recovered/Resolved]
  - Product use in unapproved indication [Unknown]
